FAERS Safety Report 8854202 (Version 2)
Quarter: 2012Q4

REPORT INFORMATION
  Report Type: Spontaneous
  Country: US (occurrence: None)
  Receive Date: 20121018
  Receipt Date: 20121022
  Transmission Date: 20130627
  Serious: Yes (Death)
  Sender: FDA-Public Use
  Company Number: AMAG201203121

PATIENT
  Age: 90 Year
  Sex: Male

DRUGS (9)
  1. FERAHEME [Suspect]
     Indication: IRON DEFICIENCY ANEMIA
     Dosage: 510 mg, single, IV push
     Route: 042
     Dates: start: 20121003, end: 20121003
  2. DIGOXIN (DIGOXIN) [Concomitant]
  3. PROSCAR (FINASTERIDE) [Concomitant]
  4. LEVOBUNOLOL (LEVOBUNOLOL) [Concomitant]
  5. MULTIVITAMINS PLUS IRON (FERROUS SULFATE, VITAMIN NOS) [Concomitant]
  6. LOSARTAN /HYDROCHLOOTHIAZIDE (HYDROCHLOROTHIAZIDE, LOSARTAN POTASSIUM) [Concomitant]
  7. PROTONIX (PANTOPRAZOLE SODIUM SESQUIHYDRATE) [Concomitant]
  8. ZOCOR (SIMVASTATIN) [Concomitant]
  9. FLOMAX (MORNIFLUMATE) [Concomitant]

REACTIONS (3)
  - Anaphylactic reaction [None]
  - Unresponsive to stimuli [None]
  - Cardio-respiratory arrest [None]
